FAERS Safety Report 4944669-1 (Version None)
Quarter: 2006Q1

REPORT INFORMATION
  Report Type: 
  Country: None (occurrence: None)
  Receive Date: 20060113
  Receipt Date: 20041213
  Transmission Date: 20060701
  Serious: Yes (Hospitalization, Other)
  Sender: FDA-Public Use
  Company Number: HQWYE383011NOV04

PATIENT
  Age: 58 Year
  Sex: Female

DRUGS (4)
  1. PREMPRO [Suspect]
     Indication: MENOPAUSE
     Dosage: 0.625 MG/2.5MG, ORAL
     Route: 048
     Dates: start: 19970101
  2. OS-CAL + D (CALCIUM CARBONATE/COLECALCIFEROL) [Concomitant]
  3. EFFEXOR XR [Concomitant]
  4. CELEBREX [Concomitant]

REACTIONS (2)
  - PULMONARY EMBOLISM [None]
  - THROMBOSIS [None]
